FAERS Safety Report 9564949 (Version 2)
Quarter: 2013Q3

REPORT INFORMATION
  Report Type: Spontaneous
  Country: GB (occurrence: GB)
  Receive Date: 20130930
  Receipt Date: 20130930
  Transmission Date: 20140515
  Serious: Yes (Hospitalization, Other)
  Sender: FDA-Public Use
  Company Number: PHFR2012GB006294

PATIENT
  Age: 41 Year
  Sex: Female
  Weight: 91.1 kg

DRUGS (23)
  1. CLOZARIL [Suspect]
     Indication: PARKINSON^S DISEASE
     Dosage: UNK UKN, UNK
     Route: 048
     Dates: start: 20120921
  2. CLOZARIL [Suspect]
     Dosage: 300 MG, QD
     Route: 048
     Dates: start: 20121006, end: 20121203
  3. CLOZAPINE [Suspect]
     Indication: PSYCHIATRIC SYMPTOM
     Dosage: 12.5 MG, QD (STARTED AT 12.5MG AND TITRATED UP TO 300MG A DAY)
     Route: 048
     Dates: start: 20121001
  4. CLOZAPINE [Suspect]
     Dosage: 300 MG, QD (STARTED AT 12.5MG THEN TITRATED UP TO 300MG PER DAY)
     Route: 048
     Dates: end: 201210
  5. CLOZAPINE [Suspect]
     Dosage: 275 MG, QD
     Route: 048
     Dates: start: 20121027, end: 20121130
  6. SERTRALINE [Concomitant]
     Indication: DEPRESSION
     Dosage: 50 MG, QD
     Route: 048
     Dates: start: 201208
  7. SERTRALINE [Concomitant]
     Dosage: 200 MG, UNK
     Dates: end: 20121018
  8. SERTRALINE [Concomitant]
     Dosage: 50 MG, UNK
     Dates: start: 20121019
  9. VALPROATE SEMISODIUM [Concomitant]
     Indication: AFFECTIVE DISORDER
     Dosage: 1500 MG, QD
     Route: 048
     Dates: start: 201201
  10. CLONAZEPAM [Concomitant]
     Indication: AGITATION
     Dosage: 2 MG, QD (REGULAR AND WHEN NECESSARY)
     Route: 048
     Dates: start: 201201
  11. TRIHEXYPHENIDYL [Concomitant]
     Indication: SALIVARY HYPERSECRETION
     Dosage: 10 G, QD
     Route: 048
     Dates: start: 201211, end: 201212
  12. OMEPRAZOLE [Concomitant]
     Indication: REFLUX GASTRITIS
     Dosage: 20 G, QD
     Route: 048
     Dates: start: 201201
  13. OMEPRAZOLE [Concomitant]
     Dosage: DOSE INCREASED DUE TO AGGRAVATED HEATBURN
  14. DEPO-PROVERA [Concomitant]
     Dates: start: 20121102
  15. PARACETAMOL [Concomitant]
     Dosage: UNK UKN, PRN
  16. ORPHENADRINE [Concomitant]
  17. OLANZAPINE [Concomitant]
     Dosage: UNK
     Dates: end: 20121018
  18. CO-AMOXICLAV [Concomitant]
     Dosage: UNK UKN, UNK
  19. TRAMADOL [Concomitant]
     Dosage: 50 MG, (FOR 5 DAYS WHEN NECESSARY)
     Dates: start: 201210, end: 201210
  20. SENNA [Concomitant]
     Dosage: UNK UKN, UNK
  21. INFLUENZA VIRUS [Concomitant]
     Dosage: UNK UKN, UNK
     Dates: start: 201211, end: 201211
  22. FERROUS SULPHATE [Concomitant]
     Dosage: UNK UKN, UNK
     Route: 030
  23. MEDROXYPROGESTERON ACETATE [Concomitant]
     Dosage: 200 UKN, UNK

REACTIONS (17)
  - Pericardial effusion [Recovering/Resolving]
  - Myocarditis [Recovering/Resolving]
  - Troponin T increased [Recovering/Resolving]
  - C-reactive protein increased [Recovering/Resolving]
  - Eosinophil count increased [Recovering/Resolving]
  - Pyrexia [Recovering/Resolving]
  - Myocarditis [Recovering/Resolving]
  - Tachycardia [Recovering/Resolving]
  - Chest pain [Recovering/Resolving]
  - Dyspnoea [Recovering/Resolving]
  - Malaise [Recovering/Resolving]
  - Pulse pressure abnormal [Recovering/Resolving]
  - Dyspepsia [Unknown]
  - White blood cell count increased [Recovering/Resolving]
  - Neutrophil count increased [Unknown]
  - Antipsychotic drug level increased [Unknown]
  - Dizziness [Recovering/Resolving]
